FAERS Safety Report 16072404 (Version 1)
Quarter: 2019Q1

REPORT INFORMATION
  Report Type: Spontaneous
  Country: US (occurrence: US)
  Receive Date: 20190213
  Receipt Date: 20190213
  Transmission Date: 20190418
  Serious: No
  Sender: FDA-Public Use
  Company Number: None

PATIENT
  Age: 52 Year
  Sex: Female
  Weight: 123.38 kg

DRUGS (2)
  1. RASUVO [Suspect]
     Active Substance: METHOTREXATE SODIUM
     Indication: RHEUMATOID ARTHRITIS
     Dosage: ?          OTHER DOSE:25MG (0.5ML) ;?
     Route: 058
     Dates: start: 201804
  2. RASUVO [Suspect]
     Active Substance: METHOTREXATE SODIUM
     Indication: OSTEOPOROSIS

REACTIONS (1)
  - Foot operation [None]
